FAERS Safety Report 5528809-1 (Version None)
Quarter: 2007Q4

REPORT INFORMATION
  Report Type: 
  Country: None (occurrence: None)
  Receive Date: 20071129
  Receipt Date: 20071120
  Transmission Date: 20080405
  Serious: Yes (Other)
  Sender: FDA-Public Use
  Company Number: JP-JNJFOC-20071108158

PATIENT
  Age: 73 Year
  Sex: Female

DRUGS (2)
  1. ITRIZOLE [Suspect]
     Indication: NAIL TINEA
     Route: 048
  2. FOSAMAC [Concomitant]
     Indication: OSTEOPOROSIS
     Route: 048

REACTIONS (3)
  - ABDOMINAL PAIN UPPER [None]
  - OEDEMA PERIPHERAL [None]
  - RENAL IMPAIRMENT [None]
